FAERS Safety Report 23418509 (Version 1)
Quarter: 2024Q1

REPORT INFORMATION
  Report Type: Other
  Country: US (occurrence: US)
  Receive Date: 20240118
  Receipt Date: 20240118
  Transmission Date: 20240410
  Serious: No
  Sender: FDA-Public Use
  Company Number: US-UROVANT SCIENCES GMBH-202309-URV-001886

PATIENT
  Sex: Female
  Weight: 82.54 kg

DRUGS (14)
  1. GEMTESA [Suspect]
     Active Substance: VIBEGRON
     Indication: Product used for unknown indication
     Dosage: UNK
     Route: 065
  2. BUTALBITAL AND ACETAMINOPHEN [Concomitant]
     Active Substance: ACETAMINOPHEN\BUTALBITAL
     Indication: Headache
     Dosage: 1 TAB, 50-325 MG, Q4H, AS NEEDED
     Route: 048
     Dates: start: 20220518
  3. VITAMIN B12 [Concomitant]
     Active Substance: CYANOCOBALAMIN
     Indication: Product used for unknown indication
     Dosage: 1000 MICROGRAM, QD
     Route: 048
     Dates: start: 20211008
  4. ASPIRIN [Concomitant]
     Active Substance: ASPIRIN
     Indication: Product used for unknown indication
     Dosage: 81 MG, QD
     Dates: start: 20051130
  5. VITAMIN B6 [Concomitant]
     Active Substance: PYRIDOXINE HYDROCHLORIDE
     Indication: Product used for unknown indication
     Dosage: 1 UNK, QD
     Route: 048
  6. CO Q 10                            /00517201/ [Concomitant]
     Indication: Product used for unknown indication
     Dosage: 1000 MG,  CAPSULE, QD
     Route: 048
  7. MAGNESIUM [Concomitant]
     Active Substance: MAGNESIUM
     Indication: Product used for unknown indication
     Dosage: 500 MG, TABLET, QD
     Route: 048
  8. BIOTIN [Concomitant]
     Active Substance: BIOTIN
     Indication: Product used for unknown indication
     Dosage: 5000 MICROGRAM, TABLET, QD
     Route: 048
  9. KRILL OIL                          /01334101/ [Concomitant]
     Indication: Product used for unknown indication
     Dosage: 350 MG, CAPSULE, QD
     Route: 048
  10. ERGOCALCIFEROL [Concomitant]
     Active Substance: ERGOCALCIFEROL
     Indication: Product used for unknown indication
     Dosage: 50 MICROGRAM,CAPSULE, QD
     Route: 048
  11. CALCIUM [Concomitant]
     Active Substance: CALCIUM
     Indication: Product used for unknown indication
     Dosage: 500 MG, QD
     Route: 048
  12. TYLENOL [Concomitant]
     Active Substance: ACETAMINOPHEN
     Indication: Product used for unknown indication
     Dosage: 500 MG, CAPSULE, BID
     Route: 048
  13. SUDAFED                            /00076302/ [Concomitant]
     Indication: Product used for unknown indication
     Dosage: 120 MG, TABLET EXTENDED, PRN
     Route: 048
  14. DIETHYLPROPION HYDROCHLORIDE [Concomitant]
     Active Substance: DIETHYLPROPION HYDROCHLORIDE
     Indication: Weight decreased
     Dosage: 75 MG, TABLET EXTENDED, QD
     Route: 048

REACTIONS (3)
  - Prescription drug used without a prescription [Unknown]
  - Prescription drug used without a prescription [Unknown]
  - Inability to afford medication [Unknown]
